FAERS Safety Report 19773406 (Version 1)
Quarter: 2021Q3

REPORT INFORMATION
  Report Type: Spontaneous
  Country: US (occurrence: US)
  Receive Date: 20210901
  Receipt Date: 20210901
  Transmission Date: 20211014
  Serious: Yes (Other)
  Sender: FDA-Public Use
  Company Number: US-SEPTODONT-2021006497

PATIENT
  Age: 75 Year
  Sex: Female

DRUGS (1)
  1. 2% LIDO W/ EPI 1:100,000 (EPINEPHRINE BITARTRATE\LIDOCAINE HYDROCHLORIDE) [Suspect]
     Active Substance: EPINEPHRINE BITARTRATE\LIDOCAINE HYDROCHLORIDE
     Route: 004

REACTIONS (8)
  - Hyperventilation [Unknown]
  - Chills [Unknown]
  - Crying [Unknown]
  - Tremor [Unknown]
  - Dyspnoea [Unknown]
  - Nervousness [Unknown]
  - Drug hypersensitivity [Unknown]
  - Feeling cold [Unknown]
